FAERS Safety Report 4491331-8 (Version None)
Quarter: 2004Q4

REPORT INFORMATION
  Report Type: 
  Country: None (occurrence: None)
  Receive Date: 20041101
  Receipt Date: 20041101
  Transmission Date: 20050328
  Serious: Yes (Hospitalization)
  Sender: FDA-Public Use
  Company Number: None

PATIENT
  Age: 36 Year
  Sex: Male

DRUGS (1)
  1. ASPIRIN [Suspect]
     Indication: PAIN
     Dosage: ORAL
     Route: 048

REACTIONS (5)
  - ASTHENIA [None]
  - DIZZINESS [None]
  - DUODENAL ULCER [None]
  - FAECES DISCOLOURED [None]
  - MELAENA [None]
